FAERS Safety Report 11857744 (Version 1)
Quarter: 2015Q4

REPORT INFORMATION
  Report Type: Spontaneous
  Country: US (occurrence: None)
  Receive Date: 20151221
  Receipt Date: 20151221
  Transmission Date: 20160305
  Serious: Yes (Hospitalization)
  Sender: FDA-Public Use
  Company Number: None

PATIENT
  Age: 59 Year
  Sex: Male

DRUGS (6)
  1. CARBOPLATIN. [Concomitant]
     Active Substance: CARBOPLATIN
  2. DEX/ZOFRAN [Concomitant]
  3. IFOSFAMIDE 3G MYLAN [Suspect]
     Active Substance: IFOSFAMIDE
     Indication: T-CELL LYMPHOMA
     Dosage: 10.55G/1 DOSE?QD?INTRAVENOUS
     Route: 042
     Dates: start: 20151117, end: 20151117
  4. ETOPOSIDE. [Concomitant]
     Active Substance: ETOPOSIDE
  5. IFOSFAMIDE 1G MYLAN [Suspect]
     Active Substance: IFOSFAMIDE
     Indication: T-CELL LYMPHOMA
     Dosage: 10.55G/1 DOSE?QD?INTRAVENOUS
     Route: 042
     Dates: start: 20151117, end: 20151117
  6. EMEND [Concomitant]
     Active Substance: APREPITANT

REACTIONS (2)
  - Neurotoxicity [None]
  - Disorientation [None]

NARRATIVE: CASE EVENT DATE: 20151117
